FAERS Safety Report 5015707-5 (Version None)
Quarter: 2006Q2

REPORT INFORMATION
  Report Type: 
  Country: None (occurrence: None)
  Receive Date: 20060601
  Receipt Date: 20060522
  Transmission Date: 20061013
  Serious: Yes (Hospitalization, Other)
  Sender: FDA-Public Use
  Company Number: 2006CG00913

PATIENT
  Age: 59 Year
  Sex: Female

DRUGS (3)
  1. CRESTOR [Suspect]
     Indication: HYPERCHOLESTEROLAEMIA
     Route: 048
     Dates: start: 20041101, end: 20060522
  2. PREVISCAN [Concomitant]
  3. SELECTOL [Concomitant]
     Indication: ARRHYTHMIA

REACTIONS (8)
  - ARTHRALGIA [None]
  - ASTHMA [None]
  - FAT TISSUE INCREASED [None]
  - FATIGUE [None]
  - FLUID RETENTION [None]
  - HEPATIC STEATOSIS [None]
  - MYALGIA [None]
  - NAUSEA [None]
